APPROVED DRUG PRODUCT: ALA-SCALP
Active Ingredient: HYDROCORTISONE
Strength: 2%
Dosage Form/Route: LOTION;TOPICAL
Application: A083231 | Product #001
Applicant: LEGACY PHARMA INC
Approved: Approved Prior to Jan 1, 1982 | RLD: Yes | RS: No | Type: RX